FAERS Safety Report 5517430-7 (Version None)
Quarter: 2007Q4

REPORT INFORMATION
  Report Type: 
  Country: None (occurrence: None)
  Receive Date: 20071108
  Receipt Date: 20070509
  Transmission Date: 20080405
  Serious: Yes (Hospitalization)
  Sender: FDA-Public Use
  Company Number: 2007S1000217

PATIENT
  Age: 71 Year
  Sex: Female
  Weight: 64 kg

DRUGS (6)
  1. CUBICIN [Suspect]
     Indication: STAPHYLOCOCCAL BACTERAEMIA
     Dosage: 6 MG/KG;Q48H;IV
     Route: 042
     Dates: start: 20070325
  2. SYNTHROID [Concomitant]
  3. TOPROL-XL [Concomitant]
  4. ZOCOR [Concomitant]
  5. INSULIN [Concomitant]
  6. GENTAMICIN [Concomitant]

REACTIONS (1)
  - STAPHYLOCOCCAL BACTERAEMIA [None]
